FAERS Safety Report 10099014 (Version 2)
Quarter: 2014Q2

REPORT INFORMATION
  Report Type: Spontaneous
  Country: US (occurrence: US)
  Receive Date: 20140423
  Receipt Date: 20140423
  Transmission Date: 20141212
  Serious: No
  Sender: FDA-Public Use
  Company Number: US-GILEAD-2012-0066146

PATIENT
  Age: 68 Year
  Sex: Male

DRUGS (3)
  1. LETAIRIS [Suspect]
     Indication: PULMONARY HYPERTENSION
     Dosage: 10 MG, UNK
     Route: 048
     Dates: start: 20121015, end: 20121207
  2. LETAIRIS [Suspect]
     Indication: LUNG DISORDER
  3. PREDNISONE [Concomitant]

REACTIONS (3)
  - Heart rate increased [Unknown]
  - Priapism [Unknown]
  - Dyspnoea [Recovered/Resolved]
